FAERS Safety Report 5833839-6 (Version None)
Quarter: 2008Q3

REPORT INFORMATION
  Report Type: 
  Country: None (occurrence: None)
  Receive Date: 20080722
  Receipt Date: 20070731
  Transmission Date: 20090109
  Serious: Yes (Hospitalization)
  Sender: FDA-Public Use
  Company Number: 2007BI016247

PATIENT
  Age: 36 Year
  Sex: Female
  Weight: 80.7403 kg

DRUGS (2)
  1. AVONEX [Suspect]
     Indication: MULTIPLE SCLEROSIS
     Dosage: 30 UG; QW; IM
     Route: 030
     Dates: start: 20030501
  2. LOTENSIN [Concomitant]

REACTIONS (16)
  - AMENORRHOEA [None]
  - AMNESIA [None]
  - AURA [None]
  - BALANCE DISORDER [None]
  - BRUXISM [None]
  - CONFUSIONAL STATE [None]
  - CONVULSION [None]
  - FATIGUE [None]
  - HEMIPLEGIA [None]
  - HYPERSOMNIA [None]
  - NYSTAGMUS [None]
  - PARAESTHESIA [None]
  - PARANOIA [None]
  - SENSORY DISTURBANCE [None]
  - VISUAL IMPAIRMENT [None]
  - WEIGHT DECREASED [None]
